FAERS Safety Report 5612516-0 (Version None)
Quarter: 2008Q1

REPORT INFORMATION
  Report Type: 
  Country: None (occurrence: None)
  Receive Date: 20080201
  Receipt Date: 20080201
  Transmission Date: 20080703
  Serious: Yes (Other)
  Sender: FDA-Public Use
  Company Number: None

PATIENT
  Age: 43 Year
  Sex: Female
  Weight: 87 kg

DRUGS (1)
  1. LACTATED RINGER'S [Suspect]
     Dosage: 100 ML/HR IV DRIP
     Route: 041
     Dates: start: 20050124, end: 20080124

REACTIONS (4)
  - COUGH [None]
  - DYSPNOEA [None]
  - INFUSION RELATED REACTION [None]
  - THROAT TIGHTNESS [None]
